FAERS Safety Report 23471864 (Version 2)
Quarter: 2024Q1

REPORT INFORMATION
  Report Type: Report from Study
  Country: US (occurrence: US)
  Receive Date: 20240202
  Receipt Date: 20240206
  Transmission Date: 20240410
  Serious: No
  Sender: FDA-Public Use
  Company Number: US-SANDOZ-SDZ2023US023595

PATIENT
  Age: 55 Year
  Sex: Female
  Weight: 86.168 kg

DRUGS (4)
  1. TREPROSTINIL [Suspect]
     Active Substance: TREPROSTINIL
     Indication: Pulmonary arterial hypertension
     Dosage: 20 NG/KG/MIN CONTINOUS
     Route: 042
     Dates: start: 20211116
  2. TREPROSTINIL [Suspect]
     Active Substance: TREPROSTINIL
     Dosage: 20 NG/KG/MIN CONTINOUS
     Route: 042
  3. OPSUMIT [Concomitant]
     Active Substance: MACITENTAN
     Indication: Product used for unknown indication
     Route: 065
  4. TADALAFIL [Concomitant]
     Active Substance: TADALAFIL
     Indication: Product used for unknown indication
     Route: 065

REACTIONS (3)
  - Catheter site exfoliation [Unknown]
  - Catheter site infection [Recovering/Resolving]
  - Weight decreased [Unknown]

NARRATIVE: CASE EVENT DATE: 20231119
